FAERS Safety Report 4720919-1 (Version None)
Quarter: 2005Q3

REPORT INFORMATION
  Report Type: 
  Country: None (occurrence: None)
  Receive Date: 20050719
  Receipt Date: 20050119
  Transmission Date: 20060218
  Serious: Yes (Other)
  Sender: FDA-Public Use
  Company Number: 2005016229

PATIENT
  Age: 78 Year
  Sex: Female
  Weight: 40.8237 kg

DRUGS (8)
  1. CELEBREX [Suspect]
     Indication: OSTEOARTHRITIS
     Dosage: 200 MG (200 MG, 1 IN 1 D), ORAL
     Route: 048
  2. ASPIRIN [Concomitant]
  3. ATENOLOL [Concomitant]
  4. CONJUGATED ESTROGENS [Concomitant]
  5. DILTIAZEM [Concomitant]
  6. ATORVASTATIN (ATORVASTATIN0 [Concomitant]
  7. ALENDRONATE SODIUM [Concomitant]
  8. RABEPRAZOLE SODIUM [Concomitant]

REACTIONS (5)
  - CEREBROVASCULAR ACCIDENT [None]
  - CONFUSIONAL STATE [None]
  - DIZZINESS [None]
  - ILL-DEFINED DISORDER [None]
  - PAIN [None]
